FAERS Safety Report 20367574 (Version 1)
Quarter: 2022Q1

REPORT INFORMATION
  Report Type: Report from Study
  Country: BR (occurrence: None)
  Receive Date: 20220124
  Receipt Date: 20220124
  Transmission Date: 20220424
  Serious: Yes (Hospitalization)
  Sender: FDA-Public Use
  Company Number: BR-Merck Healthcare KGaA-9294452

PATIENT
  Age: 43 Year
  Sex: Female

DRUGS (4)
  1. REBIF [Suspect]
     Active Substance: INTERFERON BETA-1A
     Indication: Multiple sclerosis
     Dates: start: 20150702, end: 20180312
  2. REBIF [Suspect]
     Active Substance: INTERFERON BETA-1A
     Dates: start: 20180314, end: 20220110
  3. PAROXETINE [Concomitant]
     Active Substance: PAROXETINE
     Indication: Product used for unknown indication
  4. CLONAZEPAM [Concomitant]
     Active Substance: CLONAZEPAM
     Indication: Product used for unknown indication

REACTIONS (1)
  - Cholecystectomy [Recovered/Resolved]

NARRATIVE: CASE EVENT DATE: 20170101
